FAERS Safety Report 5808239-5 (Version None)
Quarter: 2008Q3

REPORT INFORMATION
  Report Type: 
  Country: None (occurrence: None)
  Receive Date: 20080709
  Receipt Date: 20080627
  Transmission Date: 20090109
  Serious: Yes (Death)
  Sender: FDA-Public Use
  Company Number: 14597

PATIENT
  Age: 41 Year
  Sex: Female

DRUGS (1)
  1. MORPHINE SULFATE [Suspect]
     Dates: start: 20070501, end: 20080524

REACTIONS (1)
  - PHARMACEUTICAL PRODUCT COMPLAINT [None]
